FAERS Safety Report 24070107 (Version 1)
Quarter: 2024Q3

REPORT INFORMATION
  Report Type: Spontaneous
  Country: GE (occurrence: GE)
  Receive Date: 20240710
  Receipt Date: 20240710
  Transmission Date: 20241017
  Serious: No
  Sender: ROCHE
  Company Number: GE-ROCHE-3382939

PATIENT
  Age: 48 Year
  Sex: Female

DRUGS (1)
  1. PHESGO [Suspect]
     Active Substance: HYALURONIDASE-ZZXF\PERTUZUMAB\TRASTUZUMAB
     Indication: HER2 positive breast cancer
     Dosage: LOADING DOSE OF 1200 MG PERTUZUMAB/600 MG TRASTUZUMAB, MAINTENANCE DOSE OF 600 MG PERTUZUMAB/600 MG
     Route: 065

REACTIONS (1)
  - Body temperature increased [Recovered/Resolved]
